FAERS Safety Report 16710117 (Version 3)
Quarter: 2019Q3

REPORT INFORMATION
  Report Type: Spontaneous
  Country: JP (occurrence: JP)
  Receive Date: 20190816
  Receipt Date: 20190911
  Transmission Date: 20191004
  Serious: Yes (Hospitalization)
  Sender: FDA-Public Use
  Company Number: JP-ASTRAZENECA-2019SF14718

PATIENT
  Age: 75 Year
  Sex: Male

DRUGS (4)
  1. TAGRISSO [Suspect]
     Active Substance: OSIMERTINIB
     Indication: NON-SMALL CELL LUNG CANCER
     Route: 048
     Dates: start: 20190801, end: 20190807
  2. FEBURIC [Concomitant]
     Active Substance: FEBUXOSTAT
     Indication: INSOMNIA
     Route: 048
     Dates: start: 20190807
  3. MYSLEE [Concomitant]
     Active Substance: ZOLPIDEM TARTRATE
     Indication: INSOMNIA
     Route: 048
     Dates: start: 20190807
  4. DEPAS [Concomitant]
     Indication: INSOMNIA
     Route: 048
     Dates: start: 20190807

REACTIONS (3)
  - Erythema multiforme [Recovered/Resolved]
  - Enterocolitis [Recovered/Resolved]
  - Gastrointestinal mucosal disorder [Recovered/Resolved]

NARRATIVE: CASE EVENT DATE: 20190807
